FAERS Safety Report 25697451 (Version 1)
Quarter: 2025Q3

REPORT INFORMATION
  Report Type: Spontaneous
  Country: US (occurrence: US)
  Receive Date: 20250818
  Receipt Date: 20250818
  Transmission Date: 20251020
  Serious: Yes (Other)
  Sender: SANDOZ
  Company Number: US-SANDOZ-SDZ2025US058866

PATIENT
  Sex: Female

DRUGS (9)
  1. AZITHROMYCIN [Suspect]
     Active Substance: AZITHROMYCIN
     Indication: Mycobacterium avium complex infection
     Dosage: 250 MG, BID
     Route: 065
  2. AMIKACIN [Suspect]
     Active Substance: AMIKACIN
     Route: 042
  3. AMIKACIN [Suspect]
     Active Substance: AMIKACIN
     Indication: Mycobacterium avium complex infection
     Route: 065
  4. ETHAMBUTOL [Suspect]
     Active Substance: ETHAMBUTOL HYDROCHLORIDE
     Indication: Mycobacterium avium complex infection
     Route: 065
  5. IMIPENEM [Suspect]
     Active Substance: IMIPENEM
     Indication: Mycobacterium avium complex infection
     Route: 065
  6. IMIPENEM [Suspect]
     Active Substance: IMIPENEM
     Indication: Mycobacterium avium complex infection
     Route: 065
  7. OMADACYCLINE [Suspect]
     Active Substance: OMADACYCLINE
     Indication: Mycobacterium avium complex infection
     Route: 065
  8. OMADACYCLINE [Suspect]
     Active Substance: OMADACYCLINE
     Indication: Mycobacterium avium complex infection
     Route: 065
  9. RIFAMPIN [Suspect]
     Active Substance: RIFAMPIN
     Indication: Mycobacterium avium complex infection
     Dosage: 300 MG, BID
     Route: 048

REACTIONS (3)
  - Mycobacterium avium complex infection [Unknown]
  - Condition aggravated [Unknown]
  - Drug intolerance [Unknown]
